FAERS Safety Report 8348082-9 (Version None)
Quarter: 2012Q2

REPORT INFORMATION
  Report Type: 
  Country: None (occurrence: None)
  Receive Date: 20120509
  Receipt Date: 20120507
  Transmission Date: 20120825
  Serious: Yes (Death)
  Sender: FDA-Public Use
  Company Number: US-JNJFOC-20120506922

PATIENT
  Sex: Female

DRUGS (1)
  1. XARELTO [Suspect]
     Indication: MITRAL VALVE REPLACEMENT
     Route: 048

REACTIONS (2)
  - INTRACARDIAC THROMBUS [None]
  - OFF LABEL USE [None]
